FAERS Safety Report 25256045 (Version 1)
Quarter: 2025Q2

REPORT INFORMATION
  Report Type: Spontaneous
  Country: US (occurrence: None)
  Receive Date: 20250429
  Receipt Date: 20250429
  Transmission Date: 20250717
  Serious: Yes (Life-Threatening, Hospitalization)
  Sender: FDA-CTU
  Company Number: None

PATIENT
  Age: 64 Year
  Sex: Female
  Weight: 58 kg

DRUGS (1)
  1. EMEND (FOSAPREPITANT DIMEGLUMINE) [Suspect]
     Active Substance: FOSAPREPITANT DIMEGLUMINE
     Indication: Prophylaxis of nausea and vomiting
     Route: 042
     Dates: start: 20250421

REACTIONS (6)
  - Dyspnoea [None]
  - Hot flush [None]
  - Flushing [None]
  - Oxygen saturation decreased [None]
  - Hypersensitivity [None]
  - Asthenia [None]

NARRATIVE: CASE EVENT DATE: 20250421
